FAERS Safety Report 12668632 (Version 2)
Quarter: 2016Q3

REPORT INFORMATION
  Report Type: Spontaneous
  Country: US (occurrence: US)
  Receive Date: 20160819
  Receipt Date: 20160915
  Transmission Date: 20161109
  Serious: Yes (Other)
  Sender: FDA-Public Use
  Company Number: US-DRREDDYS-USA/USA/16/0082510

PATIENT
  Age: 17 Year
  Sex: Male

DRUGS (2)
  1. ZENATANE [Suspect]
     Active Substance: ISOTRETINOIN
     Indication: ACNE
     Route: 048
     Dates: start: 201607
  2. ZENATANE [Suspect]
     Active Substance: ISOTRETINOIN
     Indication: ACNE CYSTIC
     Route: 048
     Dates: start: 20160426, end: 201607

REACTIONS (4)
  - Condition aggravated [Unknown]
  - Mood altered [Unknown]
  - Liver function test increased [Unknown]
  - Epistaxis [Unknown]

NARRATIVE: CASE EVENT DATE: 201607
